FAERS Safety Report 23433067 (Version 1)
Quarter: 2024Q1

REPORT INFORMATION
  Report Type: Spontaneous
  Country: US (occurrence: None)
  Receive Date: 20240123
  Receipt Date: 20240123
  Transmission Date: 20240410
  Serious: Yes (Hospitalization)
  Sender: FDA-Public Use
  Company Number: None

PATIENT
  Sex: Female

DRUGS (1)
  1. PIRFENIDONE [Suspect]
     Active Substance: PIRFENIDONE
     Indication: Idiopathic pulmonary fibrosis
     Dosage: 267MG 3 TIMES A DAY FOR 7 DAYS, THEN 534MG 3 TIMES A DAY FOR 7 DAYS, THEN 801MG 3 TIMES A DAY THEREA
     Route: 048
     Dates: start: 202311

REACTIONS (1)
  - Hospitalisation [None]
